FAERS Safety Report 18435627 (Version 2)
Quarter: 2020Q4

REPORT INFORMATION
  Report Type: Spontaneous
  Country: US (occurrence: US)
  Receive Date: 20201028
  Receipt Date: 20201230
  Transmission Date: 20210114
  Serious: Yes (Other)
  Sender: FDA-Public Use
  Company Number: US-BAYER-2020-231581

PATIENT
  Age: 21 Year
  Sex: Female

DRUGS (2)
  1. MIRENA [Suspect]
     Active Substance: LEVONORGESTREL
     Indication: CONTRACEPTION
     Dosage: 20 ?G PER DAY CONTINUOUSLY
     Route: 015
     Dates: start: 20200928, end: 20200928
  2. LIDOCAINE. [Concomitant]
     Active Substance: LIDOCAINE

REACTIONS (7)
  - Pallor [None]
  - Tinnitus [None]
  - Procedural dizziness [None]
  - Procedural pain [None]
  - Procedural nausea [None]
  - Loss of consciousness [None]
  - Complication of device insertion [None]

NARRATIVE: CASE EVENT DATE: 20200928
